FAERS Safety Report 4627958-X (Version None)
Quarter: 2005Q2

REPORT INFORMATION
  Report Type: 
  Country: None (occurrence: None)
  Receive Date: 20050401
  Receipt Date: 20050323
  Transmission Date: 20051028
  Serious: Yes (Hospitalization)
  Sender: FDA-Public Use
  Company Number: 2005049065

PATIENT
  Sex: 0

DRUGS (1)
  1. AZULFIDINE EN-TABS [Suspect]
     Indication: SAPHO SYNDROME
     Dosage: 1000 MG (ORAL)
     Route: 048

REACTIONS (3)
  - MONOPLEGIA [None]
  - MYELITIS [None]
  - SENSORY DISTURBANCE [None]
